FAERS Safety Report 24396706 (Version 1)
Quarter: 2024Q4

REPORT INFORMATION
  Report Type: Other
  Country: US (occurrence: US)
  Receive Date: 20241004
  Receipt Date: 20241004
  Transmission Date: 20250115
  Serious: Yes (Life-Threatening, Hospitalization, Other)
  Sender: EMD SERONO INC
  Company Number: US-Merck Healthcare KGaA-2024051216

PATIENT
  Age: 73 Year
  Sex: Male

DRUGS (2)
  1. METFORMIN [Suspect]
     Active Substance: METFORMIN HYDROCHLORIDE
     Indication: Type 2 diabetes mellitus
  2. METFORMIN\SITAGLIPTIN [Suspect]
     Active Substance: METFORMIN\SITAGLIPTIN
     Indication: Type 2 diabetes mellitus

REACTIONS (7)
  - Shock [Unknown]
  - Hypotension [Unknown]
  - Bradycardia [Unknown]
  - Blood creatinine increased [Unknown]
  - Toxicity to various agents [Recovering/Resolving]
  - Lactic acidosis [Unknown]
  - Accidental overdose [Recovering/Resolving]
